FAERS Safety Report 20106340 (Version 1)
Quarter: 2021Q4

REPORT INFORMATION
  Report Type: Spontaneous
  Country: US (occurrence: None)
  Receive Date: 20211124
  Receipt Date: 20211124
  Transmission Date: 20220303
  Serious: Yes (Other)
  Sender: FDA-Public Use
  Company Number: US-ROCHE-2933752

PATIENT
  Sex: Female
  Weight: 74.456 kg

DRUGS (6)
  1. ACTEMRA [Suspect]
     Active Substance: TOCILIZUMAB
     Indication: Rheumatoid arthritis
     Dosage: LAST ADMINISTERED ON 07/NOV/2021
     Route: 058
     Dates: start: 20210930
  2. ACTEMRA [Suspect]
     Active Substance: TOCILIZUMAB
  3. ACTEMRA [Suspect]
     Active Substance: TOCILIZUMAB
     Indication: Hippocampal sclerosis
  4. ACTEMRA [Suspect]
     Active Substance: TOCILIZUMAB
  5. METHOTREXATE [Concomitant]
     Active Substance: METHOTREXATE
     Indication: Rheumatoid arthritis
     Dosage: 4 PILLS IN THE MORNING AND 4 PILLS IN AFTERNOON
     Route: 048
  6. AMLODIPINE [Concomitant]
     Active Substance: AMLODIPINE BESYLATE
     Indication: Hypertension
     Dosage: DO NOT TAKE IF BLOOD PRESSURE IS UNDER 110/65
     Route: 048

REACTIONS (7)
  - Brain oedema [Unknown]
  - Product dose omission issue [Unknown]
  - Drug delivery system malfunction [Unknown]
  - Gait disturbance [Unknown]
  - Swelling face [Unknown]
  - Headache [Unknown]
  - Device malfunction [Unknown]
